FAERS Safety Report 12369315 (Version 1)
Quarter: 2016Q2

REPORT INFORMATION
  Report Type: Spontaneous
  Country: FR (occurrence: FR)
  Receive Date: 20160513
  Receipt Date: 20160513
  Transmission Date: 20160815
  Serious: Yes (Other)
  Sender: FDA-Public Use
  Company Number: FR-ACCORD-040550

PATIENT
  Age: 68 Year
  Sex: Male

DRUGS (3)
  1. CISPLATIN. [Suspect]
     Active Substance: CISPLATIN
     Indication: BLADDER CANCER
     Dates: start: 201411
  2. GEMCITABINE/GEMCITABINE HYDROCHLORIDE [Suspect]
     Active Substance: GEMCITABINE\GEMCITABINE HYDROCHLORIDE
     Indication: BLADDER CANCER
     Dosage: RECEIVED IV GEMCITABINE INTAS SOLUTION FOR INFUSION 210 MG FROM 19-FEB-2016 TO 18-MAR-2016
     Dates: start: 201411, end: 20160318
  3. CARBOPLATIN. [Suspect]
     Active Substance: CARBOPLATIN
     Indication: BLADDER CANCER
     Dosage: RECEIVED IV CARBOPLATIN KABI SOLUTION FOR INFUSION 1950 MG ONCE A CYCLE ON 19-FEB-2016
     Dates: start: 201501, end: 201506

REACTIONS (13)
  - Gastrointestinal disorder [Recovered/Resolved]
  - Haemoglobin decreased [None]
  - Secretion discharge [None]
  - Condition aggravated [None]
  - Thrombocytopenia [Recovered/Resolved]
  - Asthenia [Recovered/Resolved]
  - Skin toxicity [Unknown]
  - Initial insomnia [None]
  - Renal failure [None]
  - Metastases to liver [None]
  - General physical health deterioration [Recovered/Resolved]
  - Discomfort [None]
  - Drug intolerance [Unknown]

NARRATIVE: CASE EVENT DATE: 20160225
